FAERS Safety Report 4964338-1 (Version None)
Quarter: 2006Q1

REPORT INFORMATION
  Report Type: 
  Country: None (occurrence: None)
  Receive Date: 20060331
  Receipt Date: 20060314
  Transmission Date: 20060701
  Serious: Yes (Hospitalization)
  Sender: FDA-Public Use
  Company Number: GBT031201111

PATIENT
  Age: 43 Year
  Sex: Female
  Weight: 71 kg

DRUGS (7)
  1. GEMZAR [Suspect]
     Indication: BREAST CANCER
     Dosage: 2185 MG, OTHER; INTRAVENOUS; 2250 MG, OTHER, INTRAVENOUS
     Route: 042
     Dates: start: 20031028, end: 20031125
  2. GEMZAR [Suspect]
     Indication: BREAST CANCER
     Dosage: 2185 MG, OTHER; INTRAVENOUS; 2250 MG, OTHER, INTRAVENOUS
     Route: 042
     Dates: start: 20031209
  3. PACLITAXEL [Suspect]
     Indication: BREAST CANCER
     Dosage: 306 MG, OTHER;315 MG, OTHER;
     Dates: start: 20031028, end: 20031118
  4. PACLITAXEL [Suspect]
     Indication: BREAST CANCER
     Dosage: 306 MG, OTHER;315 MG, OTHER;
     Dates: start: 20031209
  5. EPIRUBICIN [Suspect]
     Indication: BREAST CANCER
     Dosage: 158 MG, OTHER; INTRAVENOUS
     Route: 042
     Dates: start: 20030730, end: 20031007
  6. CYCLOPHOSPHAMIDE [Suspect]
     Indication: BREAST CANCER
     Dosage: 1050 MG, OTHER; INTRAVENOUS
     Route: 042
     Dates: start: 20030730, end: 20031007
  7. DEXAMETHASONE TAB [Concomitant]

REACTIONS (10)
  - ANAEMIA [None]
  - CATHETER RELATED COMPLICATION [None]
  - CHEST PAIN [None]
  - DYSPHAGIA [None]
  - GASTROOESOPHAGEAL REFLUX DISEASE [None]
  - HIATUS HERNIA [None]
  - LYMPHANGITIS [None]
  - LYMPHOEDEMA [None]
  - PYREXIA [None]
  - THROMBOPHLEBITIS [None]
